FAERS Safety Report 12220035 (Version 2)
Quarter: 2016Q2

REPORT INFORMATION
  Report Type: Spontaneous
  Country: US (occurrence: US)
  Receive Date: 20160330
  Receipt Date: 20160506
  Transmission Date: 20160815
  Serious: No
  Sender: FDA-Public Use
  Company Number: US-ASTRAZENECA-2016SE21758

PATIENT
  Sex: Female
  Weight: 72.6 kg

DRUGS (3)
  1. MONTELUKAST [Concomitant]
     Active Substance: MONTELUKAST SODIUM
     Indication: ASTHMA
  2. SYMBICORT [Suspect]
     Active Substance: BUDESONIDE\FORMOTEROL FUMARATE DIHYDRATE
     Indication: ASTHMA
     Dosage: 80/4.5 MCG FOUR PUFFS TWICE DAILY
     Route: 055
  3. SYMBICORT [Suspect]
     Active Substance: BUDESONIDE\FORMOTEROL FUMARATE DIHYDRATE
     Indication: ASTHMA
     Dosage: 80/4.5 MCG TWO PUFFS TWICE DAILY
     Route: 055

REACTIONS (6)
  - Drug dose omission [Unknown]
  - Asthma [Unknown]
  - Viral infection [Unknown]
  - Rash [Recovered/Resolved]
  - Product quality issue [Unknown]
  - Intentional product misuse [Unknown]
